FAERS Safety Report 6162173-2 (Version None)
Quarter: 2009Q2

REPORT INFORMATION
  Report Type: 
  Country: None (occurrence: None)
  Receive Date: 20090421
  Receipt Date: 20090415
  Transmission Date: 20091009
  Serious: Yes (Hospitalization)
  Sender: FDA-Public Use
  Company Number: US-JNJFOC-20090404356

PATIENT
  Sex: Female
  Weight: 62.6 kg

DRUGS (9)
  1. DURAGESIC-100 [Suspect]
     Indication: PAIN
     Route: 062
  2. CALTRATE [Concomitant]
     Indication: BONE DISORDER
     Route: 048
  3. VALIUM [Concomitant]
     Indication: PANIC ATTACK
     Route: 048
  4. SYNTHROID [Concomitant]
     Indication: THYROID DISORDER
     Route: 048
  5. PERCOCET [Concomitant]
     Indication: PAIN
     Dosage: AS NEEDED
     Route: 048
  6. NEXIUM [Concomitant]
     Indication: GASTRIC DISORDER
     Route: 048
  7. AMITIZA [Concomitant]
     Indication: CONSTIPATION
     Route: 048
  8. MIRALAX [Concomitant]
     Indication: CONSTIPATION
     Route: 048
  9. BONIVA [Concomitant]
     Indication: OSTEOPOROSIS
     Route: 048

REACTIONS (2)
  - APPLICATION SITE PAIN [None]
  - CIRCULATORY COLLAPSE [None]
